FAERS Safety Report 7448621-6 (Version None)
Quarter: 2011Q2

REPORT INFORMATION
  Report Type: 
  Country: None (occurrence: None)
  Receive Date: 20110429
  Receipt Date: 20100528
  Transmission Date: 20111010
  Serious: No
  Sender: FDA-Public Use
  Company Number: US-ASTRAZENECA-2010SE24894

PATIENT
  Sex: Female

DRUGS (7)
  1. LEXAPRO [Concomitant]
  2. GLUCOSAMINE [Concomitant]
  3. LEVOTHYROXINE SODIUM [Concomitant]
  4. ACETAMINOPHEN [Concomitant]
  5. LIPITOR [Concomitant]
  6. MULTI-VITAMIN [Concomitant]
  7. NEXIUM [Suspect]
     Route: 048

REACTIONS (2)
  - HYPOAESTHESIA [None]
  - PAIN IN EXTREMITY [None]
